FAERS Safety Report 9465445 (Version 1)
Quarter: 2013Q3

REPORT INFORMATION
  Report Type: Spontaneous
  Country: FR (occurrence: FR)
  Receive Date: 20130820
  Receipt Date: 20130820
  Transmission Date: 20140515
  Serious: Yes (Hospitalization)
  Sender: FDA-Public Use
  Company Number: FR-ASTRAZENECA-2013SE63070

PATIENT
  Age: 27283 Day
  Sex: Female

DRUGS (5)
  1. CRESTOR [Suspect]
     Route: 048
     Dates: start: 201204, end: 20121221
  2. VANCOMYCINE [Suspect]
     Indication: ENDOCARDITIS
     Route: 065
     Dates: start: 20121121
  3. RIFAMPICINE [Suspect]
     Indication: ENDOCARDITIS
     Route: 065
     Dates: start: 20121121, end: 20121219
  4. SIFROL [Concomitant]
  5. BISOPROLOL [Concomitant]

REACTIONS (3)
  - Erythema [Recovered/Resolved]
  - Hepatocellular injury [Recovered/Resolved]
  - Pruritus [Recovered/Resolved]
